FAERS Safety Report 6530285-7 (Version None)
Quarter: 2010Q1

REPORT INFORMATION
  Report Type: 
  Country: None (occurrence: None)
  Receive Date: 20100107
  Receipt Date: 20091228
  Transmission Date: 20100710
  Serious: Yes (Other)
  Sender: FDA-Public Use
  Company Number: CH-ROCHE-676681

PATIENT
  Age: 71 Year
  Sex: Male

DRUGS (4)
  1. BEVACIZUMAB [Suspect]
     Route: 042
     Dates: start: 20090602, end: 20091221
  2. FLUOROURACIL [Concomitant]
     Dates: start: 20090602, end: 20091012
  3. LEUCOVORIN CALCIUM [Concomitant]
     Dates: start: 20090602, end: 20091012
  4. IRINOTECAN HCL [Concomitant]
     Dates: start: 20090602, end: 20091012

REACTIONS (3)
  - DIARRHOEA [None]
  - FATIGUE [None]
  - MALIGNANT NEOPLASM PROGRESSION [None]
